FAERS Safety Report 4941719-3 (Version None)
Quarter: 2006Q1

REPORT INFORMATION
  Report Type: 
  Country: None (occurrence: None)
  Receive Date: 20060313
  Receipt Date: 20060120
  Transmission Date: 20060701
  Serious: Yes (Other)
  Sender: FDA-Public Use
  Company Number: JP-ROCHE-434110

PATIENT
  Age: 79 Year
  Sex: Male
  Weight: 40 kg

DRUGS (2)
  1. TAMIFLU [Suspect]
     Indication: INFLUENZA
     Route: 048
     Dates: start: 20060116, end: 20060120
  2. ACETAMINOPHEN [Concomitant]
     Route: 048
     Dates: start: 20060116, end: 20060118

REACTIONS (1)
  - BLOOD CREATINE PHOSPHOKINASE INCREASED [None]
